FAERS Safety Report 25446213 (Version 2)
Quarter: 2025Q4

REPORT INFORMATION
  Report Type: Spontaneous
  Country: US (occurrence: None)
  Receive Date: 20250617
  Receipt Date: 20251029
  Transmission Date: 20260118
  Serious: No
  Sender: UCB
  Company Number: US-UCBSA-2025010273

PATIENT
  Age: 57 Year
  Weight: 92.971 kg

DRUGS (7)
  1. BIMZELX [Suspect]
     Active Substance: BIMEKIZUMAB-BKZX
     Indication: Psoriatic arthropathy
     Dosage: 320 MILLIGRAM, EV 4 WEEKS, FOR 16 WEEKS, THEN 2 SYRINGES EVERY 8 WEEKS THEREAFTER
  2. BIMZELX [Suspect]
     Active Substance: BIMEKIZUMAB-BKZX
     Indication: Psoriasis
  3. CELEBREX [Concomitant]
     Active Substance: CELECOXIB
     Indication: Product used for unknown indication
     Dosage: 200 MILLIGRAM
  4. VITAMIN D3 K2 [Concomitant]
     Indication: Product used for unknown indication
     Dosage: 25 MICROGRAM
  5. ZETIA [Concomitant]
     Active Substance: EZETIMIBE
     Indication: Product used for unknown indication
     Dosage: 10 MILLIGRAM
  6. LEVOTHYROXINE SODIUM [Concomitant]
     Active Substance: LEVOTHYROXINE SODIUM
     Indication: Product used for unknown indication
     Dosage: UNK, 75
  7. Mounjaro Subcutaneous Solution Auto [Concomitant]
     Indication: Product used for unknown indication
     Dosage: UNK, SUBCUTANEOUS SOLUTION, AUTO

REACTIONS (1)
  - Therapeutic product effect incomplete [Unknown]
